FAERS Safety Report 9772994 (Version 3)
Quarter: 2014Q1

REPORT INFORMATION
  Report Type: Spontaneous
  Country: US (occurrence: US)
  Receive Date: 20131219
  Receipt Date: 20140127
  Transmission Date: 20141002
  Serious: Yes (Other)
  Sender: FDA-Public Use
  Company Number: US-BAYER-2013-152454

PATIENT
  Age: 34 Year
  Sex: Female

DRUGS (3)
  1. GADAVIST [Suspect]
     Indication: NUCLEAR MAGNETIC RESONANCE IMAGING BRAIN
     Dosage: 7.5 ML, ONCE
     Route: 042
     Dates: start: 20131207, end: 20131207
  2. GADAVIST [Suspect]
     Indication: HEADACHE
  3. GADAVIST [Suspect]
     Indication: DIZZINESS

REACTIONS (3)
  - Pain in extremity [None]
  - Chest discomfort [None]
  - Chest pain [None]
